FAERS Safety Report 5316310-X (Version None)
Quarter: 2007Q2

REPORT INFORMATION
  Report Type: 
  Country: None (occurrence: None)
  Receive Date: 20070430
  Receipt Date: 20070413
  Transmission Date: 20071010
  Serious: Yes (Other)
  Sender: FDA-Public Use
  Company Number: 07-000864

PATIENT
  Sex: Female

DRUGS (2)
  1. FEMHRT [Suspect]
     Dosage: 0.5MG/2.5MCG, ORAL
     Route: 048
  2. FEMARA [Concomitant]

REACTIONS (6)
  - ABDOMINAL DISTENSION [None]
  - BACK PAIN [None]
  - DISEASE PROGRESSION [None]
  - DRUG DISPENSING ERROR [None]
  - METRORRHAGIA [None]
  - TUMOUR MARKER INCREASED [None]
